FAERS Safety Report 4793845-X (Version None)
Quarter: 2005Q4

REPORT INFORMATION
  Report Type: 
  Country: None (occurrence: None)
  Receive Date: 20051006
  Receipt Date: 20051006
  Transmission Date: 20060501
  Serious: Yes (Other)
  Sender: FDA-Public Use
  Company Number: None

PATIENT
  Age: 47 Year
  Sex: Male
  Weight: 85.0041 kg

DRUGS (3)
  1. OXYCODONE 160 MG TEVA [Suspect]
     Indication: METASTASES TO BONE
     Dosage: 160 MG BID PO
     Route: 048
     Dates: start: 20050701, end: 20051005
  2. OXYCODONE 160 MG TEVA [Suspect]
     Indication: PAIN
     Dosage: 160 MG BID PO
     Route: 048
     Dates: start: 20050701, end: 20051005
  3. OXYCODONE 160 MG TEVA [Suspect]
     Indication: PROSTATE CANCER METASTATIC
     Dosage: 160 MG BID PO
     Route: 048
     Dates: start: 20050701, end: 20051005

REACTIONS (1)
  - DRUG INEFFECTIVE [None]
